FAERS Safety Report 8873336 (Version 2)
Quarter: 2013Q2

REPORT INFORMATION
  Report Type: Spontaneous
  Country: US (occurrence: US)
  Receive Date: 20121023
  Receipt Date: 20130422
  Transmission Date: 20140414
  Serious: No
  Sender: FDA-Public Use
  Company Number: US-ASTELLAS-2012US007353

PATIENT
  Age: 88 Year
  Sex: Female

DRUGS (2)
  1. LEXISCAN [Suspect]
     Indication: SCAN MYOCARDIAL PERFUSION
     Dosage: UNK
     Route: 042
     Dates: start: 20120828, end: 20120828
  2. LEXISCAN [Suspect]
     Dosage: 0.4MG/5ML, TOTAL DOSE
     Route: 042
     Dates: start: 20120829, end: 20120829

REACTIONS (1)
  - Injection site extravasation [Recovered/Resolved]
